FAERS Safety Report 15330516 (Version 1)
Quarter: 2018Q3

REPORT INFORMATION
  Report Type: Spontaneous
  Country: US (occurrence: US)
  Receive Date: 20180829
  Receipt Date: 20180829
  Transmission Date: 20181010
  Serious: Yes (Other)
  Sender: FDA-Public Use
  Company Number: US-MYLANLABS-2018M1062581

PATIENT
  Age: 31 Year
  Sex: Female

DRUGS (2)
  1. PREDNISONE. [Suspect]
     Active Substance: PREDNISONE
     Indication: NEUROSARCOIDOSIS
     Dosage: 4 WEEK COURSE
     Route: 048
  2. METHYLPREDNISOLONE. [Suspect]
     Active Substance: METHYLPREDNISOLONE
     Indication: NEUROSARCOIDOSIS
     Dosage: FOR 5 DAYS
     Route: 042

REACTIONS (7)
  - Arthropathy [Unknown]
  - Coordination abnormal [Unknown]
  - Insomnia [Unknown]
  - Fall [Unknown]
  - Ankle fracture [Unknown]
  - Osteonecrosis [Unknown]
  - Hyperglycaemia [Unknown]
